FAERS Safety Report 5102064-9 (Version None)
Quarter: 2006Q3

REPORT INFORMATION
  Report Type: 
  Country: None (occurrence: None)
  Receive Date: 20060907
  Receipt Date: 20060830
  Transmission Date: 20061208
  Serious: Yes (Other)
  Sender: FDA-Public Use
  Company Number: 2006105269

PATIENT
  Age: 2 Year
  Sex: Female

DRUGS (1)
  1. ROLAIDS [Suspect]
     Dosage: 30-50 TABLETS ONCE, ORAL
     Route: 048
     Dates: start: 20060830, end: 20060830

REACTIONS (2)
  - ACCIDENTAL DRUG INTAKE BY CHILD [None]
  - ACCIDENTAL EXPOSURE [None]
